FAERS Safety Report 7909966-6 (Version None)
Quarter: 2011Q4

REPORT INFORMATION
  Report Type: 
  Country: None (occurrence: None)
  Receive Date: 20111111
  Receipt Date: 20111108
  Transmission Date: 20120403
  Serious: Yes (Hospitalization)
  Sender: FDA-Public Use
  Company Number: DE-ABBOTT-11P-062-0866934-00

PATIENT
  Sex: Male
  Weight: 78 kg

DRUGS (14)
  1. CALCIUM +D3 [Concomitant]
     Indication: CALCINOSIS
  2. FUROSEMIDE [Concomitant]
     Indication: RENAL FAILURE
  3. AZATHIOPRINE [Concomitant]
     Indication: IMMUNOSUPPRESSION
  4. PANTOPRAZOLE SODIUM [Concomitant]
     Indication: PROPHYLAXIS AGAINST GASTROINTESTINAL ULCER
  5. METOPROLOL [Concomitant]
     Indication: HYPERTENSION
  6. LISINOPRIL [Concomitant]
     Indication: HYPERTENSION
  7. ALENDRONATE SODIUM [Concomitant]
     Indication: OSTEOPOROSIS
  8. MARCUMAR [Concomitant]
     Indication: THROMBOSIS PROPHYLAXIS
  9. INFLUENZA VACCINE [Concomitant]
     Indication: PRODUCT USED FOR UNKNOWN INDICATION
     Dates: start: 20111102, end: 20111102
  10. HUMIRA [Suspect]
     Indication: RHEUMATOID ARTHRITIS
     Route: 058
     Dates: start: 20110516
  11. HUMIRA [Suspect]
     Dates: start: 20110926
  12. CORTISONE ACETATE [Concomitant]
     Indication: PRODUCT USED FOR UNKNOWN INDICATION
  13. PREDNISOLONE [Concomitant]
     Indication: PRODUCT USED FOR UNKNOWN INDICATION
  14. SIMVASTATIN [Concomitant]
     Indication: HYPERCHOLESTEROLAEMIA

REACTIONS (2)
  - PNEUMONIA [None]
  - PULMONARY OEDEMA [None]
